FAERS Safety Report 5614689-2 (Version None)
Quarter: 2008Q1

REPORT INFORMATION
  Report Type: 
  Country: None (occurrence: None)
  Receive Date: 20080131
  Receipt Date: 20080121
  Transmission Date: 20080703
  Serious: Yes (Life-Threatening, Hospitalization, Other)
  Sender: FDA-Public Use
  Company Number: 023118

PATIENT
  Age: 50 Year
  Sex: Male

DRUGS (1)
  1. AMITRIPTYLINE HCL [Suspect]
     Indication: INTENTIONAL OVERDOSE
     Dosage: 13.5 G, ORAL
     Route: 048

REACTIONS (9)
  - BLOOD MAGNESIUM INCREASED [None]
  - BLOOD PH INCREASED [None]
  - BLOOD SODIUM INCREASED [None]
  - BRUGADA SYNDROME [None]
  - COMA [None]
  - CONVULSION [None]
  - OVERDOSE [None]
  - PULSE ABSENT [None]
  - TACHYCARDIA [None]
